FAERS Safety Report 14825555 (Version 2)
Quarter: 2018Q2

REPORT INFORMATION
  Report Type: Spontaneous
  Country: FR (occurrence: FR)
  Receive Date: 20180430
  Receipt Date: 20180601
  Transmission Date: 20180711
  Serious: Yes (Death)
  Sender: FDA-Public Use
  Company Number: FR-TEVA-2018-FR-887588

PATIENT
  Age: 43 Year
  Sex: Male

DRUGS (7)
  1. LOXAPAC [Suspect]
     Active Substance: LOXAPINE
     Route: 065
  2. ZOPICLONE [Suspect]
     Active Substance: ZOPICLONE
     Route: 065
  3. VALPROATE DE SODIUM [Suspect]
     Active Substance: VALPROATE SODIUM
     Route: 065
  4. ALPRAZOLAM. [Suspect]
     Active Substance: ALPRAZOLAM
     Route: 065
  5. CYMBALTA [Suspect]
     Active Substance: DULOXETINE HYDROCHLORIDE
     Route: 065
  6. CYAMEMAZINE [Suspect]
     Active Substance: CYAMEMAZINE
     Route: 065
  7. PARACETAMOL [Suspect]
     Active Substance: ACETAMINOPHEN
     Route: 065

REACTIONS (1)
  - Death [Fatal]

NARRATIVE: CASE EVENT DATE: 2017
